FAERS Safety Report 5263140-3 (Version None)
Quarter: 2007Q1

REPORT INFORMATION
  Report Type: 
  Country: None (occurrence: None)
  Receive Date: 20070312
  Receipt Date: 20070220
  Transmission Date: 20070707
  Serious: Yes (Other)
  Sender: FDA-Public Use
  Company Number: JP-PFIZER INC-2007013364

PATIENT
  Sex: Male
  Weight: 68 kg

DRUGS (9)
  1. DETRUSITOL [Suspect]
     Indication: URINARY INCONTINENCE
     Route: 048
  2. SPIROPENT [Suspect]
     Indication: URINARY INCONTINENCE
     Route: 048
  3. PONTAL [Concomitant]
     Route: 048
  4. SEDES [Concomitant]
     Route: 048
  5. AZELASTINE HCL [Concomitant]
     Route: 048
  6. MUCOSTA [Concomitant]
     Route: 048
  7. BERIZYM [Concomitant]
     Route: 048
  8. MAGNESIUM OXIDE [Concomitant]
     Route: 048
  9. OMEPRAZON [Concomitant]
     Route: 048

REACTIONS (1)
  - PRURIGO [None]
